FAERS Safety Report 10059294 (Version 1)
Quarter: 2014Q2

REPORT INFORMATION
  Report Type: Spontaneous
  Country: US (occurrence: US)
  Receive Date: 20140404
  Receipt Date: 20140404
  Transmission Date: 20141212
  Serious: Yes (Life-Threatening, Hospitalization)
  Sender: FDA-Public Use
  Company Number: US-JNJFOC-20140402809

PATIENT
  Sex: 0

DRUGS (1)
  1. REMICADE [Suspect]
     Indication: CROHN^S DISEASE
     Route: 042
     Dates: start: 2007

REACTIONS (4)
  - Renal failure [Unknown]
  - Herpes zoster [Unknown]
  - Systemic lupus erythematosus [Unknown]
  - Staphylococcal infection [Unknown]
